FAERS Safety Report 21849663 (Version 1)
Quarter: 2023Q1

REPORT INFORMATION
  Report Type: Report from Study
  Country: CA (occurrence: CA)
  Receive Date: 20230111
  Receipt Date: 20230111
  Transmission Date: 20230418
  Serious: Yes (Death)
  Sender: FDA-Public Use
  Company Number: CA-TAIHO-2022-002997

PATIENT
  Age: 62 Year
  Sex: Female

DRUGS (1)
  1. LONSURF [Suspect]
     Active Substance: TIPIRACIL HYDROCHLORIDE\TRIFLURIDINE
     Indication: Colorectal cancer metastatic
     Dosage: DOSE AND FREQUENCY WERE UNKNOWN/CYCLE 1. CURRENT CYCLE UNKNOWN.
     Route: 048
     Dates: start: 20221022

REACTIONS (2)
  - Death [Fatal]
  - Abdominal pain [Unknown]
